FAERS Safety Report 11406767 (Version 1)
Quarter: 2015Q3

REPORT INFORMATION
  Report Type: Spontaneous
  Country: US (occurrence: US)
  Receive Date: 20150821
  Receipt Date: 20150821
  Transmission Date: 20151125
  Serious: No
  Sender: FDA-Public Use
  Company Number: US-NOVOPROD-450881

PATIENT
  Age: 58 Year
  Sex: Female

DRUGS (1)
  1. VICTOZA [Suspect]
     Active Substance: LIRAGLUTIDE
     Indication: TYPE 2 DIABETES MELLITUS
     Dosage: UNK
     Route: 058
     Dates: end: 20150422

REACTIONS (8)
  - Aphonia [Unknown]
  - Respiratory tract infection [Unknown]
  - Sensation of foreign body [Recovered/Resolved]
  - Dysphonia [Not Recovered/Not Resolved]
  - Dysgeusia [Recovered/Resolved]
  - Ear infection [Unknown]
  - Hypersensitivity [Recovered/Resolved]
  - Dysphagia [Unknown]
